FAERS Safety Report 6830659-0 (Version None)
Quarter: 2010Q3

REPORT INFORMATION
  Report Type: 
  Country: None (occurrence: None)
  Receive Date: 20100712
  Receipt Date: 20100628
  Transmission Date: 20110219
  Serious: Yes (Hospitalization)
  Sender: FDA-Public Use
  Company Number: US-BAYER-201018854NA

PATIENT
  Age: 50 Year
  Sex: Female
  Weight: 79 kg

DRUGS (14)
  1. YAZ [Suspect]
     Indication: PRODUCT USED FOR UNKNOWN INDICATION
     Route: 048
     Dates: start: 20060901, end: 20080501
  2. YASMIN [Suspect]
     Indication: ORAL CONTRACEPTION
     Route: 048
     Dates: start: 20060901, end: 20080501
  3. ADVIL LIQUI-GELS [Concomitant]
     Indication: HEADACHE
  4. MORPHINE [Concomitant]
     Route: 042
  5. BENADRYL [Concomitant]
     Route: 048
  6. ONDANSETRON [Concomitant]
     Route: 042
  7. PERCOCET [Concomitant]
     Dosage: 5-325
     Route: 048
  8. COLACE [Concomitant]
  9. REGLAN [Concomitant]
  10. ARUSOL-HC [Concomitant]
  11. ORTHO FE [Concomitant]
  12. AMITIZA [Concomitant]
     Indication: CONSTIPATION
  13. OXYCODONE HCL [Concomitant]
     Dates: start: 20071101
  14. METOCLOPAMIDE [Concomitant]
     Dates: start: 20071101

REACTIONS (3)
  - ABDOMINAL PAIN [None]
  - ABDOMINAL PAIN UPPER [None]
  - PORTAL VEIN THROMBOSIS [None]
